FAERS Safety Report 7342484-5 (Version None)
Quarter: 2011Q1

REPORT INFORMATION
  Report Type: 
  Country: None (occurrence: None)
  Receive Date: 20110310
  Receipt Date: 20110307
  Transmission Date: 20110831
  Serious: Yes (Death, Hospitalization, Other)
  Sender: FDA-Public Use
  Company Number: US-PFIZER INC-2010033802

PATIENT
  Sex: Female

DRUGS (4)
  1. DILANTIN-125 [Suspect]
     Dosage: 300 MG, 1X/DAY
     Route: 048
     Dates: start: 20070101
  2. DILANTIN-125 [Suspect]
     Dosage: 100 MG, 1X/DAY
     Route: 048
     Dates: start: 20071201
  3. DILANTIN-125 [Suspect]
     Indication: CONVULSION
     Dosage: UNK
     Dates: start: 20071101
  4. DILANTIN-125 [Suspect]
     Dosage: 200 MG, 1X/DAY
     Route: 048
     Dates: start: 20071201

REACTIONS (1)
  - STEVENS-JOHNSON SYNDROME [None]
